FAERS Safety Report 4717738-9 (Version None)
Quarter: 2005Q3

REPORT INFORMATION
  Report Type: 
  Country: None (occurrence: None)
  Receive Date: 20050714
  Receipt Date: 20050226
  Transmission Date: 20060218
  Serious: No
  Sender: FDA-Public Use
  Company Number: 05P-163-0292207-00

PATIENT
  Age: 10 Year
  Sex: Female

DRUGS (1)
  1. ULTANE [Suspect]
     Dosage: 8 %
     Dates: start: 20050222, end: 20050222

REACTIONS (1)
  - CONVULSION [None]
